FAERS Safety Report 17962267 (Version 1)
Quarter: 2020Q2

REPORT INFORMATION
  Report Type: Spontaneous
  Country: US (occurrence: US)
  Receive Date: 20200630
  Receipt Date: 20200630
  Transmission Date: 20200714
  Serious: No
  Sender: FDA-Public Use
  Company Number: US-TERSERA THERAPEUTICS LLC-2020TRS000075

PATIENT

DRUGS (3)
  1. ZOLADEX [Suspect]
     Active Substance: GOSERELIN ACETATE
     Indication: BREAST CANCER
     Dosage: 3.6 MG, EVERY 28 DAYS
     Route: 065
     Dates: start: 201901
  2. ZOLADEX [Suspect]
     Active Substance: GOSERELIN ACETATE
     Indication: HORMONE RECEPTOR POSITIVE BREAST CANCER
  3. ANASTROZOLE. [Suspect]
     Active Substance: ANASTROZOLE
     Indication: PRODUCT USED FOR UNKNOWN INDICATION
     Dosage: UNK, QD (DAILY)
     Route: 065

REACTIONS (1)
  - Menopausal symptoms [Recovering/Resolving]
